FAERS Safety Report 9208923 (Version 2)
Quarter: 2013Q2

REPORT INFORMATION
  Report Type: Spontaneous
  Country: US (occurrence: US)
  Receive Date: 20130404
  Receipt Date: 20130430
  Transmission Date: 20140414
  Serious: Yes (Other)
  Sender: FDA-Public Use
  Company Number: US-AMGEN-USASP2013022599

PATIENT
  Age: 65 Year
  Sex: Female
  Weight: 83.45 kg

DRUGS (5)
  1. PROLIA [Suspect]
     Indication: OSTEOPOROSIS POSTMENOPAUSAL
     Dosage: 60 MG, UNK
     Route: 058
     Dates: start: 20130319, end: 20130319
  2. NORVASC [Concomitant]
  3. PRAVACOL [Concomitant]
  4. TRIPLEX                            /00050502/ [Concomitant]
  5. LOPRESSOR [Concomitant]

REACTIONS (5)
  - Osteoarthritis [Unknown]
  - Arthralgia [Recovering/Resolving]
  - Nausea [Unknown]
  - Joint stiffness [Recovering/Resolving]
  - Headache [Unknown]
